FAERS Safety Report 9074765 (Version 2)
Quarter: 2013Q1

REPORT INFORMATION
  Report Type: Report from Study
  Country: US (occurrence: US)
  Receive Date: 20130117
  Receipt Date: 20130117
  Transmission Date: 20140127
  Serious: Yes (Disabling)
  Sender: FDA-Public Use
  Company Number: US-AMGEN-US291679

PATIENT
  Age: 52 Year
  Sex: Male

DRUGS (1)
  1. ETANERCEPT [Suspect]
     Indication: PSORIASIS
     Dosage: 50 MG, 2 TIMES/WK
     Route: 058
     Dates: start: 20040705

REACTIONS (1)
  - Colorectal cancer [Recovered/Resolved]
